FAERS Safety Report 8586944-8 (Version None)
Quarter: 2012Q3

REPORT INFORMATION
  Report Type: 
  Country: None (occurrence: None)
  Receive Date: 20120810
  Receipt Date: 20120731
  Transmission Date: 20120928
  Serious: No
  Sender: FDA-Public Use
  Company Number: US-ASTRAZENECA-2009UW10079

PATIENT
  Age: 61 Year
  Sex: Female

DRUGS (1)
  1. NEXIUM [Suspect]
     Route: 048
     Dates: start: 20090401

REACTIONS (6)
  - VITAMIN D DEFICIENCY [None]
  - POST-TRAUMATIC STRESS DISORDER [None]
  - MAGNESIUM DEFICIENCY [None]
  - MALAISE [None]
  - ENERGY INCREASED [None]
  - BONE DENSITY DECREASED [None]
